FAERS Safety Report 10404475 (Version 1)
Quarter: 2014Q1

REPORT INFORMATION
  Report Type: Spontaneous
  Country: US (occurrence: None)
  Receive Date: 20140306
  Receipt Date: 20140306
  Transmission Date: 20141002
  Serious: Yes (Hospitalization)
  Sender: FDA-Public Use
  Company Number: 163-21880-12040888

PATIENT
  Age: 56 Year
  Sex: Male
  Weight: 87.09 kg

DRUGS (27)
  1. REVLIMID (LENALIDOMIDE) (25 MILLIGRAM, CAPSULES) [Suspect]
     Indication: CASTLEMAN^S DISEASE
     Dosage: 25 MG, 1 IN 1 D, PO
     Route: 048
     Dates: start: 201010
  2. REVLIMID (LENALIDOMIDE) (25 MILLIGRAM, CAPSULES) [Suspect]
     Indication: POEMS SYNDROME
     Dosage: 25 MG, 1 IN 1 D, PO
     Route: 048
     Dates: start: 201010
  3. FLONASE (FLUTICASONE PROPIONATE) [Concomitant]
  4. LASIX (FUROSEMIDE) [Concomitant]
  5. SYNTHROID (LEVOTHYROXINE SODIUM) [Concomitant]
  6. VIT D (ERGOCALCIFEROL) [Concomitant]
  7. DILANTIN (PHENYTOIN SODIUM) [Concomitant]
  8. SYMBICORT (SYMBICORT TURBUHALER ^DRACO^) [Concomitant]
  9. VICODIN ( VICODIN) [Concomitant]
  10. TYLENOL (PARACETAMOL) [Concomitant]
  11. ZOFRAMN (ONDANSETRON HYDROCHLORIDE) [Concomitant]
  12. MUCINEX (GUAIFENESIN) [Concomitant]
  13. BENTYL (DICYCLOVERINE HYDROCHLORIDE) [Concomitant]
  14. DIGOXID (DIGOXID) [Concomitant]
  15. GAMMAGLOBULIN (IMMUNOIGLOBULIN G HUMAN) [Concomitant]
  16. DECADRON (DEXAMETHASONE) [Concomitant]
  17. CODEINE (CODEINE) [Concomitant]
  18. PROAIR (FLUTICASONE PROPIONATE) [Concomitant]
  19. ZYLOPRIM (ALLOPURINOL) [Concomitant]
  20. DULCOLAX (BISACODYL) [Concomitant]
  21. NEURONTIN (GABAPENTIN) [Concomitant]
  22. PHENERGAN (PROMETHAZINE) [Concomitant]
  23. CLARITIN (LORATADINE) [Concomitant]
  24. IMODIUIM (LOPERAMIDE) [Concomitant]
  25. LOPRESSOR (METOPROLOL TARTRATE) [Concomitant]
  26. AMOXICILLIN (AMOXICILLIN) [Concomitant]
  27. SPIRIVA (TIOTROPIUM BROMIDE) [Concomitant]

REACTIONS (4)
  - Pneumonia [None]
  - Sepsis [None]
  - Nausea [None]
  - Vomiting [None]
